FAERS Safety Report 4870300-X (Version None)
Quarter: 2005Q4

REPORT INFORMATION
  Report Type: 
  Country: None (occurrence: None)
  Receive Date: 20051228
  Receipt Date: 20051213
  Transmission Date: 20060501
  Serious: Yes (Hospitalization)
  Sender: FDA-Public Use
  Company Number: FR200511002336

PATIENT
  Age: 47 Year
  Sex: Male

DRUGS (3)
  1. ZYPREXA [Suspect]
     Indication: SCHIZOPHRENIA
     Dosage: 20 MG, DAILY (1/D), ORAL
     Route: 048
     Dates: start: 20051004
  2. TERCIAN (CYAMEMAZINE) [Concomitant]
  3. PIPORTIL (PIPOTIAZINE) [Concomitant]

REACTIONS (1)
  - DEEP VEIN THROMBOSIS [None]
